FAERS Safety Report 7828596-8 (Version None)
Quarter: 2011Q4

REPORT INFORMATION
  Report Type: 
  Country: None (occurrence: None)
  Receive Date: 20111020
  Receipt Date: 20100607
  Transmission Date: 20120403
  Serious: Yes (Life-Threatening, Hospitalization)
  Sender: FDA-Public Use
  Company Number: JP-JNJFOC-20100603882

PATIENT
  Sex: Male

DRUGS (20)
  1. ACETAMINOPHEN [Suspect]
     Route: 065
  2. SCOPOLIA EXTRACT [Suspect]
     Indication: ILL-DEFINED DISORDER
     Route: 065
     Dates: start: 19921220, end: 19921225
  3. LOXOPROFEN SODIUM [Suspect]
     Indication: ILL-DEFINED DISORDER
     Route: 065
     Dates: start: 19921228, end: 19930103
  4. MEFENAMIC ACID [Suspect]
     Indication: ILL-DEFINED DISORDER
     Route: 065
     Dates: start: 19921220, end: 19921225
  5. AMBROXOL HYDROCHLORIDE [Suspect]
     Indication: ILL-DEFINED DISORDER
     Route: 065
     Dates: start: 19921226, end: 19921227
  6. ALDIOXA [Suspect]
     Indication: ILL-DEFINED DISORDER
     Route: 065
     Dates: start: 19930104, end: 19930105
  7. PROMETHAZINE [Suspect]
     Indication: ILL-DEFINED DISORDER
     Route: 065
  8. CEFDINIR [Suspect]
     Route: 048
     Dates: start: 19921226, end: 19921227
  9. CEFDINIR [Suspect]
     Indication: ENTEROCOLITIS
     Route: 048
     Dates: start: 19930104, end: 19930105
  10. TIQUIZIUM BROMIDE [Suspect]
     Indication: ILL-DEFINED DISORDER
     Route: 065
     Dates: start: 19921220, end: 19921225
  11. SALICYLAMIDE [Suspect]
     Indication: ILL-DEFINED DISORDER
     Route: 065
  12. CAFFEINE CITRATE [Suspect]
     Indication: ILL-DEFINED DISORDER
     Route: 065
  13. CODEINE PHOSPHATE [Suspect]
     Indication: ILL-DEFINED DISORDER
     Route: 065
     Dates: start: 19921220, end: 19921225
  14. ACETAMINOPHEN [Suspect]
     Indication: ILL-DEFINED DISORDER
     Route: 065
  15. OFLOXACIN [Suspect]
     Indication: ILL-DEFINED DISORDER
     Route: 065
     Dates: start: 19921228, end: 19930103
  16. CEFDINIR [Suspect]
     Indication: UPPER RESPIRATORY TRACT INFECTION
     Route: 048
     Dates: start: 19930104, end: 19930105
  17. CEFDINIR [Suspect]
     Route: 048
     Dates: start: 19921226, end: 19921227
  18. PL GRAN [Suspect]
     Indication: ILL-DEFINED DISORDER
     Route: 065
     Dates: start: 19921228, end: 19930105
  19. DICLOFENAC SODIUM [Suspect]
     Indication: ILL-DEFINED DISORDER
     Route: 065
     Dates: start: 19930104, end: 19930105
  20. LOPERAMIDE HCL [Suspect]
     Indication: ILL-DEFINED DISORDER
     Route: 065
     Dates: start: 19921226, end: 19921227

REACTIONS (3)
  - PORTAL VEIN THROMBOSIS [None]
  - DISSEMINATED INTRAVASCULAR COAGULATION [None]
  - PORTAL VEIN PHLEBITIS [None]
